FAERS Safety Report 9299241 (Version 1)
Quarter: 2013Q2

REPORT INFORMATION
  Report Type: Spontaneous
  Country: GB (occurrence: GB)
  Receive Date: 20130520
  Receipt Date: 20130520
  Transmission Date: 20140414
  Serious: Yes (Other)
  Sender: FDA-Public Use
  Company Number: GB-TEVA-404753ISR

PATIENT
  Sex: 0

DRUGS (13)
  1. CITALOPRAM [Suspect]
     Route: 048
  2. LANSOPRAZOLE [Suspect]
     Dosage: GASTRO-RESISTANT CAPSULE
  3. MYCOPHENOLATE MOFETIL [Concomitant]
     Dosage: 2 GRAM DAILY;
  4. PREDNISOLONE [Concomitant]
     Dosage: 20 MILLIGRAM DAILY;
  5. CETIRIZINE [Concomitant]
     Dosage: 10 MILLIGRAM DAILY;
  6. ASPIRIN [Concomitant]
     Dosage: 75 MILLIGRAM DAILY;
  7. MOVICOL [Concomitant]
     Dosage: ORAL POWDER. 13.8G SACHETS LEMON + LIME.
     Route: 048
  8. DOXAZOSIN [Concomitant]
     Dosage: 2 MILLIGRAM DAILY;
  9. BISACODYL [Concomitant]
  10. MEBEVERINE [Concomitant]
     Dosage: 405 MILLIGRAM DAILY;
  11. PEPPERMINT OIL [Concomitant]
     Dosage: 3 DOSAGE FORMS DAILY; GASTRO-RESISTANT CAPSULE
  12. MINOCYCLINE [Concomitant]
     Dosage: 100 MILLIGRAM DAILY; MODIFIED-RELEASE CAPSULES
  13. SALBUTAMOL [Concomitant]
     Route: 055

REACTIONS (2)
  - Gynaecomastia [Not Recovered/Not Resolved]
  - Hyperprolactinaemia [Not Recovered/Not Resolved]
